FAERS Safety Report 8344418-3 (Version None)
Quarter: 2012Q2

REPORT INFORMATION
  Report Type: 
  Country: None (occurrence: None)
  Receive Date: 20120508
  Receipt Date: 20120503
  Transmission Date: 20120825
  Serious: Yes (Other)
  Sender: FDA-Public Use
  Company Number: US-BAYER-2011-016360

PATIENT
  Age: 28 Year
  Sex: Female
  Weight: 52.154 kg

DRUGS (3)
  1. WELLBUTRIN [Concomitant]
     Dosage: 300 MG, QD
  2. YASMIN [Suspect]
     Dosage: UNK
     Route: 048
     Dates: start: 20030101, end: 20100511
  3. YAZ [Suspect]
     Dosage: UNK
     Route: 048
     Dates: start: 20030101, end: 20100511

REACTIONS (5)
  - EMOTIONAL DISTRESS [None]
  - CHOLELITHIASIS [None]
  - INJURY [None]
  - CHOLECYSTITIS CHRONIC [None]
  - PAIN [None]
